FAERS Safety Report 25678310 (Version 1)
Quarter: 2025Q3

REPORT INFORMATION
  Report Type: Spontaneous
  Country: GB (occurrence: GB)
  Receive Date: 20250813
  Receipt Date: 20250813
  Transmission Date: 20251020
  Serious: Yes (Hospitalization)
  Sender: ELI LILLY AND COMPANY
  Company Number: None

PATIENT
  Age: 37 Year
  Sex: Female
  Weight: 73 kg

DRUGS (1)
  1. TIRZEPATIDE [Suspect]
     Active Substance: TIRZEPATIDE
     Indication: Product used for unknown indication
     Route: 065

REACTIONS (3)
  - Weight decreased [Recovering/Resolving]
  - Vomiting [Recovering/Resolving]
  - Decreased appetite [Not Recovered/Not Resolved]
